FAERS Safety Report 14507482 (Version 1)
Quarter: 2018Q1

REPORT INFORMATION
  Report Type: Spontaneous
  Country: US (occurrence: US)
  Receive Date: 20180208
  Receipt Date: 20180208
  Transmission Date: 20180509
  Serious: No
  Sender: FDA-Public Use
  Company Number: US-PURDUE-USA-2017-0141550

PATIENT
  Age: 33 Year
  Sex: Male

DRUGS (5)
  1. BUTRANS [Suspect]
     Active Substance: BUPRENORPHINE
     Dosage: 5 MCG/HR, Q 5-7-DAYS
     Route: 062
     Dates: start: 201702, end: 201703
  2. BUTRANS [Suspect]
     Active Substance: BUPRENORPHINE
     Dosage: 20 MCG, Q5 DAY
     Route: 062
     Dates: start: 201704, end: 201705
  3. BUTRANS [Suspect]
     Active Substance: BUPRENORPHINE
     Indication: BACK PAIN
     Dosage: 20 MCG/HR, Q5 DAY
     Route: 062
     Dates: start: 201710
  4. BUTRANS [Suspect]
     Active Substance: BUPRENORPHINE
     Dosage: 10 MCG/HR, Q 5-7 DAYS
     Route: 062
     Dates: start: 201703, end: 201704
  5. BUPRENORPHINE TRANSDERMAL PATCH (SIMILAR TO NDA 21-306) [Suspect]
     Active Substance: BUPRENORPHINE
     Indication: BACK PAIN
     Dosage: 20 MCG/HR, Q5 DAY
     Route: 062
     Dates: start: 201706, end: 201709

REACTIONS (6)
  - Off label use [Not Recovered/Not Resolved]
  - Application site discomfort [Not Recovered/Not Resolved]
  - Product adhesion issue [Unknown]
  - Application site rash [Not Recovered/Not Resolved]
  - Application site swelling [Not Recovered/Not Resolved]
  - Drug effect decreased [Not Recovered/Not Resolved]

NARRATIVE: CASE EVENT DATE: 201702
